FAERS Safety Report 20963911 (Version 1)
Quarter: 2022Q2

REPORT INFORMATION
  Report Type: Spontaneous
  Country: PL (occurrence: PL)
  Receive Date: 20220615
  Receipt Date: 20220615
  Transmission Date: 20220721
  Serious: Yes (Death, Other)
  Sender: FDA-Public Use
  Company Number: PL-NOVARTISPH-NVSC2022PL105907

PATIENT
  Sex: Female

DRUGS (7)
  1. RITUXIMAB [Suspect]
     Active Substance: RITUXIMAB
     Indication: Diffuse large B-cell lymphoma
     Dosage: (100 PERCENT DOSE)
     Route: 065
  2. CYTARABINE [Suspect]
     Active Substance: CYTARABINE
     Indication: Diffuse large B-cell lymphoma
     Dosage: (50 PERCENT DOSES) (DEXAMETHASONE, METHOTREXATE, VINCRISTINE,IFOSFAMIDE, CYTARABINE, ETOPOSIDE)
     Route: 065
  3. ETOPOSIDE [Suspect]
     Active Substance: ETOPOSIDE
     Indication: Diffuse large B-cell lymphoma
     Dosage: (50 PERCENT DOSES) (DEXAMETHASONE, METHOTREXATE, VINCRISTINE,IFOSFAMIDE, CYTARABINE, ETOPOSIDE)
     Route: 065
  4. METHOTREXATE [Suspect]
     Active Substance: METHOTREXATE
     Indication: Diffuse large B-cell lymphoma
     Dosage: (50% DOSES) (DEXAMETHASONE, METHOTREXATE, VINCRISTINE,IFOSFAMIDE, CYTARABINE, ETOPOSIDE)
     Route: 065
  5. IFOSFAMIDE [Suspect]
     Active Substance: IFOSFAMIDE
     Indication: Diffuse large B-cell lymphoma
     Dosage: (50 PERCENT DOSES) (DEXAMETHASONE, METHOTREXATE, VINCRISTINE,IFOSFAMIDE, CYTARABINE, ETOPOSIDE)
     Route: 065
  6. DEXAMETHASONE [Suspect]
     Active Substance: DEXAMETHASONE
     Indication: Diffuse large B-cell lymphoma
     Dosage: (50 PERCENT DOSES) (DEXAMETHASONE, METHOTREXATE, VINCRISTINE,IFOSFAMIDE, CYTARABINE, ETOPOSIDE)
     Route: 065
  7. VINCRISTINE [Suspect]
     Active Substance: VINCRISTINE
     Indication: Diffuse large B-cell lymphoma
     Dosage: (50% DOSES) (DEXAMETHASONE, METHOTREXATE, VINCRISTINE,IFOSFAMIDE, CYTARABINE, ETOPOSIDE)
     Route: 065

REACTIONS (3)
  - Systemic infection [Fatal]
  - Condition aggravated [Fatal]
  - Cardiovascular insufficiency [Fatal]
